FAERS Safety Report 15795503 (Version 2)
Quarter: 2019Q2

REPORT INFORMATION
  Report Type: Report from Study
  Country: US (occurrence: US)
  Receive Date: 20190107
  Receipt Date: 20190425
  Transmission Date: 20190711
  Serious: Yes (Hospitalization, Other)
  Sender: FDA-Public Use
  Company Number: US-OTSUKA-2018_040495

PATIENT
  Sex: Female

DRUGS (1)
  1. DEXTROMETHORPHAN/QUINIDINE [Suspect]
     Active Substance: DEXTROMETHORPHAN HYDROBROMIDE\QUINIDINE SULFATE
     Indication: AFFECT LABILITY
     Dosage: 1 DF, BID
     Route: 048
     Dates: start: 20171221, end: 2018

REACTIONS (9)
  - Haematoma [Not Recovered/Not Resolved]
  - Fall [Unknown]
  - Contusion [Not Recovered/Not Resolved]
  - Disease recurrence [Not Recovered/Not Resolved]
  - Memory impairment [Not Recovered/Not Resolved]
  - Blister [Not Recovered/Not Resolved]
  - Insomnia [Not Recovered/Not Resolved]
  - Atrial fibrillation [Unknown]
  - Heart rate decreased [Unknown]

NARRATIVE: CASE EVENT DATE: 2018
